FAERS Safety Report 7541648-5 (Version None)
Quarter: 2011Q2

REPORT INFORMATION
  Report Type: 
  Country: None (occurrence: None)
  Receive Date: 20110603
  Receipt Date: 20110523
  Transmission Date: 20111010
  Serious: Yes (Hospitalization)
  Sender: FDA-Public Use
  Company Number: SV-1186381

PATIENT
  Sex: Male

DRUGS (3)
  1. AMIKACIN [Concomitant]
  2. VIGAMOX [Suspect]
     Indication: EYE DISCHARGE
     Dosage: (OPHTHALMIC)
     Route: 047
  3. AMPICILLIN SODIUM [Concomitant]

REACTIONS (2)
  - STAPHYLOCOCCAL INFECTION [None]
  - DRUG INEFFECTIVE [None]
